FAERS Safety Report 11170441 (Version 1)
Quarter: 2015Q2

REPORT INFORMATION
  Report Type: Report from Study
  Country: CA (occurrence: CA)
  Receive Date: 20150608
  Receipt Date: 20150608
  Transmission Date: 20150821
  Serious: Yes (Other)
  Sender: FDA-Public Use
  Company Number: CA-JNJFOC-20150600601

PATIENT
  Age: 17 Year
  Sex: Male
  Weight: 71.6 kg

DRUGS (2)
  1. REMICADE [Suspect]
     Active Substance: INFLIXIMAB
     Indication: CROHN^S DISEASE
     Dosage: 16TH INFUSION
     Route: 042
     Dates: start: 20150529
  2. REMICADE [Suspect]
     Active Substance: INFLIXIMAB
     Indication: CROHN^S DISEASE
     Route: 042

REACTIONS (4)
  - Infusion related reaction [Recovered/Resolved]
  - Dyspnoea [Recovered/Resolved]
  - Anal fistula [Unknown]
  - Hot flush [Recovered/Resolved]

NARRATIVE: CASE EVENT DATE: 201505
